FAERS Safety Report 13612780 (Version 1)
Quarter: 2017Q2

REPORT INFORMATION
  Report Type: Spontaneous
  Country: US (occurrence: US)
  Receive Date: 20170605
  Receipt Date: 20170605
  Transmission Date: 20170830
  Serious: No
  Sender: FDA-Public Use
  Company Number: US-ALLERGAN-1713121US

PATIENT
  Age: 39 Year
  Sex: Female

DRUGS (1)
  1. KYBELLA [Suspect]
     Active Substance: DEOXYCHOLIC ACID
     Indication: FAT TISSUE INCREASED
     Dosage: 4 VIALS, SINGLE
     Route: 058
     Dates: start: 20170309, end: 20170309

REACTIONS (4)
  - Facial paresis [Recovering/Resolving]
  - Nerve injury [Recovering/Resolving]
  - Injection site swelling [Recovering/Resolving]
  - Hypoaesthesia [Recovering/Resolving]

NARRATIVE: CASE EVENT DATE: 20170309
